FAERS Safety Report 7386042-5 (Version None)
Quarter: 2011Q1

REPORT INFORMATION
  Report Type: 
  Country: None (occurrence: None)
  Receive Date: 20110331
  Receipt Date: 20110317
  Transmission Date: 20110831
  Serious: Yes (Other)
  Sender: FDA-Public Use
  Company Number: US-ELI_LILLY_AND_COMPANY-US201103005661

PATIENT
  Sex: Female

DRUGS (14)
  1. GLIPIZIDE [Concomitant]
  2. NEURONTIN [Concomitant]
  3. PREDNISONE [Concomitant]
  4. BACLOFEN [Concomitant]
  5. METFORMIN HCL [Concomitant]
  6. PERCOCET [Concomitant]
  7. LEVOXYL [Concomitant]
  8. CALCITRIOL [Concomitant]
  9. ZOLOFT [Concomitant]
  10. PLAQUENIL [Concomitant]
  11. CRESTOR [Concomitant]
  12. FORTEO [Suspect]
     Indication: OSTEOPOROSIS
     Dosage: 20 UG, DAILY (1/D)
     Route: 065
  13. KLONOPIN [Concomitant]
  14. TOPROL-XL [Concomitant]

REACTIONS (3)
  - FOOT FRACTURE [None]
  - SURGERY [None]
  - SPINAL FRACTURE [None]
